FAERS Safety Report 14690240 (Version 2)
Quarter: 2018Q3

REPORT INFORMATION
  Report Type: Report from Study
  Country: AT (occurrence: AT)
  Receive Date: 20180328
  Receipt Date: 20180925
  Transmission Date: 20181010
  Serious: Yes (Other)
  Sender: FDA-Public Use
  Company Number: AT-TEVA-2018-AT-872909

PATIENT
  Age: 37 Year
  Sex: Male
  Weight: 62 kg

DRUGS (3)
  1. TACROLIMUS. [Suspect]
     Active Substance: TACROLIMUS
     Indication: RENAL TRANSPLANT
     Dosage: UNK UNK, UNKNOWN FREQUENCY
     Route: 065
  2. TACROLIMUS. [Suspect]
     Active Substance: TACROLIMUS
     Dosage: 500 MILLIGRAM DAILY; UNK UNK, UNKNOWN FREQ.
     Route: 065
  3. TACROLIMUS. [Suspect]
     Active Substance: TACROLIMUS
     Dosage: 1000 MG, QD
     Route: 065
     Dates: start: 20160308

REACTIONS (4)
  - Oral herpes [Recovered/Resolved]
  - Stomatitis [Recovered/Resolved]
  - Diabetes mellitus [Recovered/Resolved]
  - Candida infection [Recovered/Resolved]

NARRATIVE: CASE EVENT DATE: 201603
